FAERS Safety Report 9785061 (Version 2)
Quarter: 2014Q1

REPORT INFORMATION
  Report Type: Report from Study
  Country: ES (occurrence: ES)
  Receive Date: 20131227
  Receipt Date: 20140217
  Transmission Date: 20141002
  Serious: Yes (Disabling)
  Sender: FDA-Public Use
  Company Number: ES-MERCK-1312ESP009250

PATIENT
  Age: 83 Year
  Sex: Male
  Weight: 69 kg

DRUGS (1)
  1. INTERFERON ALFA-2B [Suspect]
     Indication: MALIGNANT MELANOMA
     Dosage: 20.000.000- 1-5 DAYS/4 WEEKS
     Route: 042
     Dates: start: 20080107, end: 20080215

REACTIONS (2)
  - Parkinson^s disease [Not Recovered/Not Resolved]
  - Asthenia [Recovered/Resolved]
